FAERS Safety Report 5069458-1 (Version None)
Quarter: 2006Q3

REPORT INFORMATION
  Report Type: 
  Country: None (occurrence: None)
  Receive Date: 20060731
  Receipt Date: 20060718
  Transmission Date: 20061208
  Serious: Yes (Death)
  Sender: FDA-Public Use
  Company Number: 200611886BCC

PATIENT
  Age: 58 Year
  Sex: Male
  Weight: 95.2554 kg

DRUGS (6)
  1. ALEVE [Suspect]
     Indication: ARTHRITIS
     Dosage: 440 MG QD ORAL
     Route: 048
     Dates: start: 20000224
  2. ALEVE [Suspect]
     Indication: BACK PAIN
     Dosage: 440 MG QD ORAL
     Route: 048
     Dates: start: 20000224
  3. POTASSIUM CHLORIDE [Concomitant]
  4. HYDROCHLOROTHIAZIDE [Concomitant]
  5. NORVASC [Concomitant]
  6. ACETAMINOPHEN [Concomitant]

REACTIONS (11)
  - BLOOD PRESSURE INCREASED [None]
  - BRAIN HERNIATION [None]
  - CARDIAC FAILURE CONGESTIVE [None]
  - CEREBROVASCULAR ACCIDENT [None]
  - CONVULSION [None]
  - HAEMATOCRIT DECREASED [None]
  - HAEMORRHAGE INTRACRANIAL [None]
  - RED BLOOD CELL COUNT DECREASED [None]
  - RESPIRATORY FAILURE [None]
  - UNRESPONSIVE TO STIMULI [None]
  - WHITE BLOOD CELL COUNT INCREASED [None]
